FAERS Safety Report 4368396-7 (Version None)
Quarter: 2004Q2

REPORT INFORMATION
  Report Type: 
  Country: None (occurrence: None)
  Receive Date: 20040602
  Receipt Date: 20030715
  Transmission Date: 20050107
  Serious: Yes (Hospitalization)
  Sender: FDA-Public Use
  Company Number: JP-GLAXOSMITHKLINE-B0304713A

PATIENT
  Age: 65 Year
  Sex: Male
  Weight: 44 kg

DRUGS (14)
  1. VALTREX [Suspect]
     Indication: HERPES ZOSTER
     Dosage: 3G PER DAY
     Route: 048
     Dates: start: 20030711, end: 20030714
  2. PRECIPITATED CALCIUM CARBONATE [Concomitant]
     Dosage: 4.5G PER DAY
     Route: 048
  3. NICORANDIL [Concomitant]
     Dosage: 15MG PER DAY
     Route: 048
  4. DILTIAZEM HYDROCHLORIDE [Concomitant]
     Dosage: 200MG PER DAY
     Route: 048
  5. ISMN [Concomitant]
     Dosage: 40MG PER DAY
     Route: 048
  6. ASPIRIN [Concomitant]
     Dosage: 100MG PER DAY
     Route: 048
  7. CARVEDILOL [Concomitant]
     Dosage: 10MG PER DAY
     Route: 048
  8. NITROGLYCERIN [Concomitant]
     Dosage: 25MG PER DAY
     Route: 065
  9. FAMOTIDINE [Concomitant]
     Dosage: 10MG PER DAY
     Route: 048
  10. TOCOPHEROL CONCENTRATE CAP [Concomitant]
     Dosage: 300MG PER DAY
     Route: 048
  11. MECOBALAMIN [Concomitant]
     Dosage: 1.5MG PER DAY
     Route: 048
  12. AMLODIPINE BESYLATE [Concomitant]
     Dosage: 5MG PER DAY
     Route: 048
  13. TERAZOSIN HYDROCHLORIDE [Concomitant]
     Dosage: .5MG PER DAY
     Route: 048
  14. ZOLPIDEM TARTRATE [Concomitant]
     Dosage: 5MG PER DAY
     Route: 048

REACTIONS (8)
  - DEPRESSED LEVEL OF CONSCIOUSNESS [None]
  - DISORIENTATION [None]
  - DRUG TOXICITY [None]
  - ENCEPHALOPATHY [None]
  - HAEMODIALYSIS [None]
  - INCOHERENT [None]
  - OVERDOSE [None]
  - SPEECH DISORDER [None]
